FAERS Safety Report 9482445 (Version 1)
Quarter: 2013Q3

REPORT INFORMATION
  Report Type: Spontaneous
  Country: BR (occurrence: BR)
  Receive Date: 20130828
  Receipt Date: 20130828
  Transmission Date: 20140515
  Serious: Yes (Hospitalization)
  Sender: FDA-Public Use
  Company Number: BR-SANOFI-AVENTIS-2013SA084894

PATIENT
  Sex: Female
  Weight: 64 kg

DRUGS (11)
  1. ALLEGRA [Suspect]
     Indication: HYPERSENSITIVITY
     Route: 048
  2. PRELONE [Suspect]
     Indication: PRODUCT USED FOR UNKNOWN INDICATION
     Route: 065
  3. ATENSINA [Concomitant]
     Indication: BLOOD PRESSURE
     Dosage: STRENGTH: 100 MG
     Dates: start: 2013, end: 201308
  4. PLAVIX [Concomitant]
     Indication: CEREBRAL ISCHAEMIA
     Dosage: AFTER LUNCH?STRENGTH: 75 MG
     Route: 048
     Dates: start: 2009
  5. PURAN T4 [Concomitant]
     Indication: THYROID DISORDER
     Dosage: STRENGTH: 50 MCG
     Route: 048
     Dates: start: 2005
  6. FRONTAL [Concomitant]
     Indication: ANXIETY
     Dosage: HALF IN THE MORNING AND HALF AT NIGHT?STRENGTH: 2 MG
     Route: 048
     Dates: start: 2009
  7. RIVOTRIL [Concomitant]
     Indication: ADJUVANT THERAPY
     Dosage: STRENGTH: 2 MG?HALF IN THE MORNING AND HALF AT NIGHT
     Route: 048
     Dates: start: 2009
  8. ARADOIS [Concomitant]
     Indication: ASTHMA
     Route: 048
     Dates: start: 201308
  9. ARADOIS [Concomitant]
     Indication: BLOOD PRESSURE
     Route: 048
     Dates: start: 201308
  10. SINVASTACOR [Concomitant]
     Indication: BLOOD CHOLESTEROL
     Dosage: STRENGTH: 40 MG
     Route: 048
     Dates: start: 2010
  11. FORASEQ [Concomitant]
     Indication: DYSPNOEA
     Dosage: 2 TABLET IN THE MORNING AND 2  TABLET AT NIGHT
     Route: 055
     Dates: start: 2009

REACTIONS (1)
  - Adverse event [Unknown]
